FAERS Safety Report 5866214-9 (Version None)
Quarter: 2008Q3

REPORT INFORMATION
  Report Type: 
  Country: None (occurrence: None)
  Receive Date: 20080829
  Receipt Date: 20080822
  Transmission Date: 20090109
  Serious: Yes (Other)
  Sender: FDA-Public Use
  Company Number: US-ABBOTT-08P-163-0472932-00

PATIENT
  Sex: Female

DRUGS (6)
  1. HUMIRA [Suspect]
     Indication: CROHN'S DISEASE
     Dosage: 40 MG X 4 TOTAL
     Route: 058
     Dates: start: 20071106, end: 20071116
  2. HUMIRA [Suspect]
     Indication: ANKYLOSING SPONDYLITIS
  3. OXCARBAZEPINE [Concomitant]
     Indication: FACIAL PALSY
     Route: 048
  4. LIALDA [Concomitant]
     Indication: CROHN'S DISEASE
     Route: 048
     Dates: start: 20070101
  5. VITAMIN TAB [Concomitant]
     Indication: PREGNANCY
     Route: 048
     Dates: start: 20070101
  6. SUCCINIC ACID [Concomitant]
     Indication: MINERAL SUPPLEMENTATION
     Route: 048
     Dates: start: 20070101

REACTIONS (2)
  - BACK PAIN [None]
  - LABOUR COMPLICATION [None]
